FAERS Safety Report 8953925 (Version 3)
Quarter: 2012Q4

REPORT INFORMATION
  Report Type: 
  Country: US (occurrence: US)
  Receive Date: 20121206
  Receipt Date: 20121212
  Transmission Date: 20130627
  Serious: No
  Sender: FDA-Public Use
  Company Number: US-009507513-1212USA002320

PATIENT
  Age: 32 Year
  Sex: Male
  Weight: 73.16 kg

DRUGS (3)
  1. LOTRIMIN ULTRA [Suspect]
     Indication: TINEA CRURIS
     Dosage: UNK, Once
     Route: 061
     Dates: start: 20120805, end: 20120805
  2. IMITREX (SUMATRIPTAN) [Concomitant]
     Indication: MIGRAINE
     Dosage: UNK, Unknown
  3. VITAMINS (UNSPECIFIED) [Concomitant]
     Indication: PRODUCT USED FOR UNKNOWN INDICATION
     Dosage: UNK, Unknown

REACTIONS (2)
  - Burning sensation [Recovered/Resolved]
  - Skin irritation [Recovered/Resolved]
